FAERS Safety Report 4835140-6 (Version None)
Quarter: 2005Q4

REPORT INFORMATION
  Report Type: 
  Country: None (occurrence: None)
  Receive Date: 20051122
  Receipt Date: 20050803
  Transmission Date: 20060501
  Serious: Yes (Hospitalization)
  Sender: FDA-Public Use
  Company Number: PHBS2005JP11253

PATIENT
  Age: 54 Year
  Sex: Female

DRUGS (5)
  1. SIMULECT [Suspect]
     Indication: LIVER TRANSPLANT
     Route: 065
  2. NEORAL [Suspect]
     Indication: LIVER TRANSPLANT
     Dosage: UNK, UNK
     Route: 048
     Dates: start: 20050225
  3. TACROLIMUS [Suspect]
     Indication: LIVER TRANSPLANT
     Dosage: UNK, UNK
     Route: 048
     Dates: start: 20050125, end: 20050224
  4. METHYLPREDNISOLONE [Concomitant]
     Indication: LIVER TRANSPLANT
  5. CELLCEPT [Concomitant]
     Indication: LIVER TRANSPLANT

REACTIONS (8)
  - BIOPSY LIVER ABNORMAL [None]
  - BLOOD BILIRUBIN INCREASED [None]
  - HEPATIC CONGESTION [None]
  - HEPATIC ENZYME INCREASED [None]
  - HEPATIC HAEMORRHAGE [None]
  - HEPATIC NECROSIS [None]
  - LIVER DISORDER [None]
  - LIVER TRANSPLANT REJECTION [None]
